FAERS Safety Report 19638734 (Version 1)
Quarter: 2021Q3

REPORT INFORMATION
  Report Type: Spontaneous
  Country: US (occurrence: US)
  Receive Date: 20210729
  Receipt Date: 20210729
  Transmission Date: 20211014
  Serious: No
  Sender: FDA-Public Use
  Company Number: US-SA-2021SA236036

PATIENT
  Age: 54 Year
  Sex: Female

DRUGS (2)
  1. METFORMIN [Concomitant]
     Active Substance: METFORMIN HYDROCHLORIDE
     Dosage: UNK
     Route: 065
  2. LANTUS SOLOSTAR [Suspect]
     Active Substance: INSULIN GLARGINE
     Dosage: 22 IU, HS
     Route: 065
     Dates: start: 2012

REACTIONS (4)
  - Device issue [Unknown]
  - Spondylitis [Unknown]
  - Wrong technique in device usage process [Unknown]
  - Arthritis [Unknown]
